FAERS Safety Report 10059631 (Version 3)
Quarter: 2014Q2

REPORT INFORMATION
  Report Type: Spontaneous
  Country: US (occurrence: US)
  Receive Date: 20140404
  Receipt Date: 20140522
  Transmission Date: 20141212
  Serious: Yes (Life-Threatening, Hospitalization, Other)
  Sender: FDA-Public Use
  Company Number: US-ROCHE-1372872

PATIENT
  Sex: Female
  Weight: 108.9 kg

DRUGS (13)
  1. CARVEDILOL [Suspect]
     Indication: PRODUCT USED FOR UNKNOWN INDICATION
     Route: 048
     Dates: start: 20110928
  2. KLONOPIN [Suspect]
     Indication: PRODUCT USED FOR UNKNOWN INDICATION
     Dosage: 1 CAP EVERY 12 HOURS
     Route: 065
  3. KLONOPIN [Suspect]
     Route: 065
  4. KLONOPIN [Suspect]
     Route: 065
  5. IBUPROFEN [Concomitant]
     Route: 065
     Dates: end: 20110924
  6. DIOVAN [Concomitant]
     Route: 048
  7. DIOVAN [Concomitant]
     Route: 048
  8. NORVASC [Concomitant]
     Route: 065
  9. DILAUDID [Concomitant]
     Dosage: 1 TABLET EVERY 4 HOURS
     Route: 048
  10. CLONIDINE [Concomitant]
     Dosage: 500MCG/ML
     Route: 037
  11. CLONIDINE [Concomitant]
     Route: 048
  12. OXYCODONE [Concomitant]
     Route: 065
  13. CLONAZEPAM [Concomitant]
     Route: 065

REACTIONS (49)
  - Hypertensive encephalopathy [Unknown]
  - Vomiting [Unknown]
  - Muscular weakness [Unknown]
  - Hypertension [Unknown]
  - Insomnia [Unknown]
  - Dehydration [Unknown]
  - Osteomyelitis [Unknown]
  - Implant site hypersensitivity [Unknown]
  - Wound dehiscence [Unknown]
  - Paralysis [Unknown]
  - Neuralgia [Unknown]
  - Post procedural haemorrhage [Unknown]
  - Contusion [Unknown]
  - Throat irritation [Unknown]
  - Convulsion [Unknown]
  - Cough [Unknown]
  - Extradural abscess [Unknown]
  - Influenza [Unknown]
  - Impaired gastric emptying [Unknown]
  - Implant site mass [Unknown]
  - Headache [Unknown]
  - Dyspnoea [Unknown]
  - Pain in extremity [Unknown]
  - Lumbar spinal stenosis [Unknown]
  - Obesity [Unknown]
  - Dry mouth [Unknown]
  - Nausea [Unknown]
  - Neuropathy peripheral [Unknown]
  - Arthritis bacterial [Unknown]
  - Muscle spasms [Unknown]
  - Spinal osteoarthritis [Unknown]
  - Paraesthesia [Unknown]
  - Tremor [Unknown]
  - Urinary tract infection [Unknown]
  - Hypovolaemia [Unknown]
  - Asthenia [Unknown]
  - Back pain [Unknown]
  - Hypoaesthesia [Unknown]
  - Allodynia [Unknown]
  - Meningitis [Unknown]
  - Anxiety disorder [Unknown]
  - Wound infection staphylococcal [Unknown]
  - Implant site pain [Unknown]
  - Hyperpathia [Unknown]
  - Intervertebral disc degeneration [Unknown]
  - Abasia [Unknown]
  - Tooth fracture [Unknown]
  - Heart rate increased [Unknown]
  - Blood magnesium decreased [Unknown]
